FAERS Safety Report 9995534 (Version 3)
Quarter: 2014Q3

REPORT INFORMATION
  Report Type: Report from Study
  Country: US (occurrence: US)
  Receive Date: 20140311
  Receipt Date: 20140919
  Transmission Date: 20150326
  Serious: Yes (Hospitalization, Other)
  Sender: FDA-Public Use
  Company Number: US-ALEXION PHARMACEUTICALS INC.-A201305039

PATIENT

DRUGS (4)
  1. CELEBREX [Concomitant]
     Active Substance: CELECOXIB
     Indication: PAIN
     Dosage: UNK, PRN
     Route: 065
     Dates: start: 20080801
  2. CODEINE [Concomitant]
     Active Substance: CODEINE
     Indication: BACK PAIN
     Dosage: UNK, PRN
     Route: 065
     Dates: start: 20080801
  3. SOLIRIS [Suspect]
     Active Substance: ECULIZUMAB
     Indication: PAROXYSMAL NOCTURNAL HAEMOGLOBINURIA
     Dosage: 900 MG, Q2W
     Route: 042
     Dates: start: 20080916
  4. GABAPENTIN. [Concomitant]
     Active Substance: GABAPENTIN
     Indication: BACK PAIN
     Dosage: 900 MG, QD
     Route: 065
     Dates: start: 20080801

REACTIONS (16)
  - Thrombosis [Unknown]
  - Dysphagia [Unknown]
  - Gene mutation [Unknown]
  - Transient ischaemic attack [Unknown]
  - Thrombotic microangiopathy [Unknown]
  - Unevaluable event [Unknown]
  - Dyspnoea [Unknown]
  - Cardiomyopathy [Unknown]
  - Asthenia [Unknown]
  - Angina pectoris [Unknown]
  - Headache [Unknown]
  - Haemolysis [Not Recovered/Not Resolved]
  - Haemoglobinuria [Unknown]
  - Platelet count decreased [Unknown]
  - Fatigue [Unknown]
  - Asthma [Unknown]

NARRATIVE: CASE EVENT DATE: 20140312
